FAERS Safety Report 12769756 (Version 1)
Quarter: 2016Q3

REPORT INFORMATION
  Report Type: Report from Study
  Country: US (occurrence: US)
  Receive Date: 20160922
  Receipt Date: 20160922
  Transmission Date: 20161109
  Serious: No
  Sender: FDA-Public Use
  Company Number: US-AMGEN-USASL2016123008

PATIENT
  Age: 60 Year
  Sex: Male

DRUGS (1)
  1. ENBREL [Suspect]
     Active Substance: ETANERCEPT
     Indication: PRODUCT USED FOR UNKNOWN INDICATION
     Dosage: UNK
     Route: 065

REACTIONS (6)
  - Injection site mass [Recovered/Resolved]
  - Weight increased [Unknown]
  - Fear [Unknown]
  - Oropharyngeal pain [Recovering/Resolving]
  - Weight decreased [Unknown]
  - Overdose [Unknown]

NARRATIVE: CASE EVENT DATE: 20160911
